FAERS Safety Report 20884822 (Version 2)
Quarter: 2022Q2

REPORT INFORMATION
  Report Type: Spontaneous
  Country: ES (occurrence: ES)
  Receive Date: 20220527
  Receipt Date: 20220615
  Transmission Date: 20220721
  Serious: Yes (Hospitalization)
  Sender: FDA-Public Use
  Company Number: None

PATIENT
  Age: 55 Year
  Sex: Female

DRUGS (8)
  1. ALPRAZOLAM [Suspect]
     Active Substance: ALPRAZOLAM
     Dosage: 20 MG, 1X/DAY
     Route: 048
     Dates: start: 20220424, end: 20220430
  2. MIRTAZAPINE [Concomitant]
     Active Substance: MIRTAZAPINE
     Dosage: 30 MG, 1X/DAY
     Route: 048
     Dates: start: 20210509
  3. OLANZAPINA CINFA [Concomitant]
     Route: 048
     Dates: start: 20210509
  4. ZOPICLONA QUALIGEN [Concomitant]
     Route: 048
     Dates: start: 20210509
  5. EFAVIRENZ/EMTRICITABINA/TENOFOVIR DISOPROXILO TEVA [Concomitant]
     Indication: HIV infection
     Dosage: 1X/DAY
  6. RIVOTRIL [Concomitant]
     Active Substance: CLONAZEPAM
     Dosage: 2 MG, 3X/DAY
     Route: 048
     Dates: start: 20210509
  7. CLOTHIAPINE [Concomitant]
     Active Substance: CLOTHIAPINE
     Route: 048
     Dates: start: 20210509
  8. LORMETAZEPAM CINFA [Concomitant]
     Route: 048
     Dates: start: 20210509

REACTIONS (4)
  - Overdose [Unknown]
  - Seizure [Recovered/Resolved]
  - Syncope [Recovered/Resolved]
  - Drug withdrawal syndrome [Recovering/Resolving]

NARRATIVE: CASE EVENT DATE: 20220424
